FAERS Safety Report 5187983-X (Version None)
Quarter: 2006Q4

REPORT INFORMATION
  Report Type: 
  Country: None (occurrence: None)
  Receive Date: 20061221
  Receipt Date: 20061212
  Transmission Date: 20070319
  Serious: Yes (Hospitalization)
  Sender: FDA-Public Use
  Company Number: CZ-JNJFOC-20061204498

PATIENT
  Sex: Female

DRUGS (3)
  1. INFLIXIMAB [Suspect]
     Indication: RHEUMATOID ARTHRITIS
     Route: 042
  2. MTX [Concomitant]
     Route: 065
  3. MEDROL [Concomitant]
     Route: 065

REACTIONS (5)
  - ASCITES [None]
  - COLITIS [None]
  - DYSPNOEA [None]
  - HYDROTHORAX [None]
  - URINARY TRACT INFECTION [None]
